FAERS Safety Report 8981323 (Version 2)
Quarter: 2013Q1

REPORT INFORMATION
  Report Type: Spontaneous
  Country: US (occurrence: US)
  Receive Date: 20121221
  Receipt Date: 20130102
  Transmission Date: 20140127
  Serious: Yes (Other)
  Sender: FDA-Public Use
  Company Number: US-BAYER-2012-129873

PATIENT
  Sex: Male

DRUGS (1)
  1. ALEVE GELCAP [Suspect]
     Indication: BACK PAIN
     Dosage: 8 TO 10 TABLETS

REACTIONS (2)
  - Intentional overdose [None]
  - Drug ineffective [None]
